FAERS Safety Report 7356703-2 (Version None)
Quarter: 2011Q1

REPORT INFORMATION
  Report Type: 
  Country: None (occurrence: None)
  Receive Date: 20110316
  Receipt Date: 20110311
  Transmission Date: 20110831
  Serious: Yes (Death, Life-Threatening, Hospitalization)
  Sender: FDA-Public Use
  Company Number: GXKR2011DE01117

PATIENT
  Sex: Male
  Weight: 85 kg

DRUGS (4)
  1. NEUROCIL [Concomitant]
     Dosage: 67.2 MG, UNK
     Route: 048
  2. DIAZEPAM [Concomitant]
     Dosage: 22.5 MG, UNK
     Route: 048
  3. NITOMAN [Concomitant]
     Dosage: 150 MG, UNK
     Route: 065
  4. FLUOXETIN HEXAL [Suspect]
     Dosage: 180 MG DAILY FOR 3 MONTHS
     Route: 048

REACTIONS (9)
  - VOMITING [None]
  - OVERDOSE [None]
  - RENAL FAILURE ACUTE [None]
  - FATIGUE [None]
  - DRUG INEFFECTIVE [None]
  - SEPSIS [None]
  - HEPATITIS [None]
  - PNEUMONIA [None]
  - DYSPNOEA [None]
